FAERS Safety Report 11064603 (Version 2)
Quarter: 2015Q2

REPORT INFORMATION
  Report Type: Spontaneous
  Country: IL (occurrence: IL)
  Receive Date: 20150424
  Receipt Date: 20150504
  Transmission Date: 20150821
  Serious: Yes (Death, Other)
  Sender: FDA-Public Use
  Company Number: IL-ASTRAZENECA-2015SE37983

PATIENT
  Age: 24114 Day
  Sex: Male
  Weight: 107 kg

DRUGS (11)
  1. SODIUM CHLORIDE. [Concomitant]
     Active Substance: SODIUM CHLORIDE
     Dosage: 0.9% 1000ML 1X2 A DAY
     Route: 042
  2. OMEPRADEX [Concomitant]
     Active Substance: OMEPRAZOLE
  3. ROSUVASTATIN [Concomitant]
     Active Substance: ROSUVASTATIN
     Route: 048
  4. ROSUVASTATIN [Concomitant]
     Active Substance: ROSUVASTATIN
     Route: 048
  5. CLEXANE [Concomitant]
     Active Substance: ENOXAPARIN SODIUM
  6. DERALIN [Concomitant]
     Active Substance: PROPRANOLOL HYDROCHLORIDE
  7. EXFORGE [Concomitant]
     Active Substance: AMLODIPINE BESYLATE\VALSARTAN
     Dosage: 160/10MG DAILY
     Route: 048
  8. LOPRESOR DIVITABS [Concomitant]
     Route: 048
  9. BYDUREON [Suspect]
     Active Substance: EXENATIDE
     Route: 058
     Dates: start: 20150204
  10. COUMADIN [Concomitant]
     Active Substance: WARFARIN SODIUM
  11. DUODART [Concomitant]
     Active Substance: DUTASTERIDE\TAMSULOSIN
     Dosage: 0.5/0.4MG DAILY
     Route: 048

REACTIONS (2)
  - Death [Fatal]
  - Thalamic infarction [Unknown]

NARRATIVE: CASE EVENT DATE: 20150206
